FAERS Safety Report 15478681 (Version 1)
Quarter: 2018Q4

REPORT INFORMATION
  Report Type: Spontaneous
  Country: CA (occurrence: CA)
  Receive Date: 20181009
  Receipt Date: 20181009
  Transmission Date: 20190205
  Serious: Yes (Other)
  Sender: FDA-Public Use
  Company Number: CA-PFIZER INC-2018403017

PATIENT
  Age: 56 Year
  Sex: Male
  Weight: 79.37 kg

DRUGS (9)
  1. TYLENOL ARTHRITIS PAIN [Concomitant]
     Active Substance: ACETAMINOPHEN
     Indication: EPIDIDYMAL CYST REMOVAL
  2. CYCLOBENZAPRINE. [Suspect]
     Active Substance: CYCLOBENZAPRINE
     Dosage: 10 MG, UNK
     Route: 065
  3. TYLENOL ARTHRITIS PAIN [Concomitant]
     Active Substance: ACETAMINOPHEN
     Indication: HERNIA REPAIR
     Dosage: UNK
  4. ATIVAN [Suspect]
     Active Substance: LORAZEPAM
     Dosage: 1 MG, UNK
     Route: 065
  5. HYDROMORPHONE HYDROCHLORIDE. [Suspect]
     Active Substance: HYDROMORPHONE HYDROCHLORIDE
     Indication: EPIDIDYMAL CYST REMOVAL
  6. METAMUCIL [PSYLLIUM HYDROPHILIC MUCILLOID] [Concomitant]
     Dosage: UNK
  7. HYDROMORPHONE HYDROCHLORIDE. [Suspect]
     Active Substance: HYDROMORPHONE HYDROCHLORIDE
     Indication: HERNIA REPAIR
     Dosage: 2 MG, UNK (5 EVERY DAY)
     Route: 048
  8. RISPERIDONE. [Suspect]
     Active Substance: RISPERIDONE
     Dosage: 5 MG, UNK
     Route: 065
  9. ZINC. [Concomitant]
     Active Substance: ZINC
     Dosage: UNK

REACTIONS (3)
  - Malaise [Recovering/Resolving]
  - Nightmare [Recovering/Resolving]
  - Suicidal ideation [Recovering/Resolving]
